FAERS Safety Report 10020148 (Version 1)
Quarter: 2014Q1

REPORT INFORMATION
  Report Type: Spontaneous
  Country: FR (occurrence: FR)
  Receive Date: 20140319
  Receipt Date: 20140319
  Transmission Date: 20141002
  Serious: Yes (Life-Threatening)
  Sender: FDA-Public Use
  Company Number: FR-ROCHE-1360191

PATIENT
  Age: 27 Year
  Sex: Female
  Weight: 38.5 kg

DRUGS (2)
  1. LEXOMIL [Suspect]
     Indication: TOXICITY TO VARIOUS AGENTS
     Route: 048
     Dates: start: 20130228, end: 20130228
  2. VALIUM [Suspect]
     Indication: TOXICITY TO VARIOUS AGENTS
     Route: 048
     Dates: start: 20130228, end: 20130228

REACTIONS (3)
  - Coma [Recovered/Resolved]
  - Rhabdomyolysis [Recovered/Resolved]
  - Mendelson^s syndrome [Recovered/Resolved]
